FAERS Safety Report 8317644-7 (Version None)
Quarter: 2012Q2

REPORT INFORMATION
  Report Type: 
  Country: None (occurrence: None)
  Receive Date: 20120427
  Receipt Date: 20090624
  Transmission Date: 20120825
  Serious: No
  Sender: FDA-Public Use
  Company Number: US-TEVA-2009007610

PATIENT
  Sex: Female

DRUGS (8)
  1. NUVIGIL [Suspect]
     Indication: MULTIPLE SCLEROSIS
     Dosage: 150 MILLIGRAM;
     Route: 048
     Dates: start: 20090605, end: 20090605
  2. TIZANIDINE HCL [Concomitant]
     Indication: MUSCLE SPASMS
  3. NEURONTIN [Concomitant]
     Indication: MULTIPLE SCLEROSIS
     Dates: start: 20080101
  4. PREVACID [Concomitant]
     Indication: ABDOMINAL DISCOMFORT
  5. LISINOPRIL [Concomitant]
     Indication: BLOOD PRESSURE
  6. EFFEXOR [Concomitant]
     Indication: ANTIDEPRESSANT THERAPY
  7. DIAZEPAM [Concomitant]
     Indication: MUSCLE SPASMS
  8. MECLIZINE [Concomitant]
     Indication: NAUSEA
     Dates: start: 20080101

REACTIONS (2)
  - PSYCHOMOTOR HYPERACTIVITY [None]
  - INSOMNIA [None]
